FAERS Safety Report 23536355 (Version 1)
Quarter: 2024Q1

REPORT INFORMATION
  Report Type: Spontaneous
  Country: US (occurrence: US)
  Receive Date: 20240219
  Receipt Date: 20240219
  Transmission Date: 20240410
  Serious: Yes (Other)
  Sender: FDA-Public Use
  Company Number: US-CHEPLA-2024002018

PATIENT
  Sex: Female

DRUGS (8)
  1. CAPECITABINE [Suspect]
     Active Substance: CAPECITABINE
     Indication: Breast cancer female
  2. HERCEPTIN [Suspect]
     Active Substance: TRASTUZUMAB
  3. HERCEPTIN [Suspect]
     Active Substance: TRASTUZUMAB
     Dosage: HERCEPTIN INTRAVENOUS
     Route: 042
  4. PREDNISONE [Concomitant]
     Active Substance: PREDNISONE
  5. VITAMIN C [Concomitant]
     Active Substance: ASCORBIC ACID
  6. VITAMIN D3 [Concomitant]
     Active Substance: CHOLECALCIFEROL
  7. Vitamin K12 [Concomitant]
  8. TRAZIMERA [Concomitant]
     Active Substance: TRASTUZUMAB-QYYP
     Route: 042

REACTIONS (3)
  - Pneumothorax [Recovering/Resolving]
  - Fatigue [Recovering/Resolving]
  - Pleural effusion [Recovering/Resolving]
